FAERS Safety Report 12710710 (Version 2)
Quarter: 2017Q1

REPORT INFORMATION
  Report Type: Spontaneous
  Country: US (occurrence: US)
  Receive Date: 20160902
  Receipt Date: 20170314
  Transmission Date: 20170428
  Serious: No
  Sender: FDA-Public Use
  Company Number: US-TEVA-684373ACC

PATIENT
  Sex: Female

DRUGS (1)
  1. PARAGARD T 380A [Suspect]
     Active Substance: COPPER
     Indication: CONTRACEPTION
     Route: 065
     Dates: end: 20160706

REACTIONS (4)
  - Device breakage [Unknown]
  - Therapy cessation [Unknown]
  - Embedded device [Recovered/Resolved]
  - Complication of device removal [Recovered/Resolved with Sequelae]

NARRATIVE: CASE EVENT DATE: 20160627
